FAERS Safety Report 5078890-1 (Version None)
Quarter: 2006Q3

REPORT INFORMATION
  Report Type: 
  Country: None (occurrence: None)
  Receive Date: 20060809
  Receipt Date: 20060801
  Transmission Date: 20061208
  Serious: Yes (Other)
  Sender: FDA-Public Use
  Company Number: 2006095002

PATIENT
  Sex: 0

DRUGS (1)
  1. ZOLOFT [Suspect]
     Dosage: 100 MG (100 MG, 1 IN 1 D)
     Dates: start: 20050101

REACTIONS (1)
  - DRUG SCREEN FALSE POSITIVE [None]
